FAERS Safety Report 16379089 (Version 1)
Quarter: 2019Q2

REPORT INFORMATION
  Report Type: Spontaneous
  Country: US (occurrence: US)
  Receive Date: 20190531
  Receipt Date: 20190531
  Transmission Date: 20190711
  Serious: Yes (Hospitalization, Disabling, Other)
  Sender: FDA-Public Use
  Company Number: US-JNJFOC-20190540933

PATIENT
  Age: 52 Year
  Sex: Female

DRUGS (1)
  1. INVOKANA [Suspect]
     Active Substance: CANAGLIFLOZIN
     Indication: PRODUCT USED FOR UNKNOWN INDICATION
     Route: 048

REACTIONS (7)
  - Diabetic foot infection [Unknown]
  - Sepsis [Unknown]
  - Foot fracture [Unknown]
  - Limb amputation [Unknown]
  - Osteomyelitis [Unknown]
  - Gangrene [Unknown]
  - Impaired healing [Unknown]

NARRATIVE: CASE EVENT DATE: 20131104
